FAERS Safety Report 6440867-9 (Version None)
Quarter: 2009Q4

REPORT INFORMATION
  Report Type: 
  Country: None (occurrence: None)
  Receive Date: 20091116
  Receipt Date: 20091109
  Transmission Date: 20100525
  Serious: Yes (Other)
  Sender: FDA-Public Use
  Company Number: US-ELI_LILLY_AND_COMPANY-US200909004906

PATIENT
  Age: 54 Year
  Sex: Female

DRUGS (4)
  1. ALIMTA [Suspect]
     Indication: NON-SMALL CELL LUNG CANCER
     Dosage: 500 MG/M2, UNK
     Route: 042
     Dates: start: 20090908
  2. GEMZAR [Suspect]
     Indication: NON-SMALL CELL LUNG CANCER
  3. AVASTIN [Concomitant]
     Indication: NON-SMALL CELL LUNG CANCER
  4. CARBOPLATIN [Concomitant]
     Indication: NON-SMALL CELL LUNG CANCER

REACTIONS (6)
  - BONE MARROW FAILURE [None]
  - DISSEMINATED INTRAVASCULAR COAGULATION [None]
  - HEPATIC CIRRHOSIS [None]
  - HYPERSENSITIVITY [None]
  - HYPERSPLENISM [None]
  - THROMBOCYTOPENIA [None]
